FAERS Safety Report 21474292 (Version 2)
Quarter: 2024Q2

REPORT INFORMATION
  Report Type: Spontaneous
  Country: US (occurrence: US)
  Receive Date: 20221018
  Receipt Date: 20240417
  Transmission Date: 20240716
  Serious: No
  Sender: FDA-Public Use
  Company Number: US-GSK-US2022AMR146260

PATIENT
  Sex: Female

DRUGS (8)
  1. BENLYSTA [Suspect]
     Active Substance: BELIMUMAB
     Indication: Tachycardia
     Dosage: 200 MG/ML, WE
     Route: 058
  2. BENLYSTA [Suspect]
     Active Substance: BELIMUMAB
     Indication: Stenosis
  3. BENLYSTA [Suspect]
     Active Substance: BELIMUMAB
     Indication: Sjogren^s syndrome
  4. BENLYSTA [Suspect]
     Active Substance: BELIMUMAB
     Indication: Systemic lupus erythematosus
  5. BENLYSTA [Suspect]
     Active Substance: BELIMUMAB
     Indication: Raynaud^s phenomenon
  6. BENLYSTA [Suspect]
     Active Substance: BELIMUMAB
     Indication: Glaucoma
  7. BENLYSTA [Suspect]
     Active Substance: BELIMUMAB
     Indication: Glaucoma
     Dosage: 200 MG/ML, WE
     Route: 058
  8. BENLYSTA [Suspect]
     Active Substance: BELIMUMAB

REACTIONS (8)
  - Injection site exfoliation [Unknown]
  - Injection site pruritus [Unknown]
  - Injection site rash [Unknown]
  - Headache [Unknown]
  - Hypertension [Unknown]
  - Quality of life decreased [Unknown]
  - Product use in unapproved indication [Unknown]
  - Product dose omission issue [Unknown]
